FAERS Safety Report 6824926-4 (Version None)
Quarter: 2010Q3

REPORT INFORMATION
  Report Type: 
  Country: None (occurrence: None)
  Receive Date: 20100708
  Receipt Date: 20061228
  Transmission Date: 20110219
  Serious: No
  Sender: FDA-Public Use
  Company Number: US-PFIZER INC-2007001434

PATIENT
  Sex: Female
  Weight: 65.77 kg

DRUGS (4)
  1. CHANTIX [Suspect]
     Indication: SMOKING CESSATION THERAPY
     Route: 048
     Dates: start: 20061201
  2. EFFEXOR [Concomitant]
     Route: 048
  3. VIVELLE-DOT [Concomitant]
     Route: 061
  4. SPIRONOLACTONE [Concomitant]
     Route: 048

REACTIONS (5)
  - DYSGEUSIA [None]
  - HEADACHE [None]
  - HYPERSOMNIA [None]
  - LETHARGY [None]
  - NAUSEA [None]
